FAERS Safety Report 5280694-1 (Version None)
Quarter: 2007Q1

REPORT INFORMATION
  Report Type: 
  Country: None (occurrence: None)
  Receive Date: 20070329
  Receipt Date: 20070319
  Transmission Date: 20070707
  Serious: Yes (Disabling)
  Sender: FDA-Public Use
  Company Number: GB-PFIZER INC-2007022407

PATIENT
  Age: 70 Year
  Sex: Male
  Weight: 73 kg

DRUGS (6)
  1. ATORVASTATIN CALCIUM [Suspect]
     Indication: MYOCARDIAL ISCHAEMIA
     Route: 048
     Dates: start: 20050712, end: 20070124
  2. ACETYLSALICYLIC ACID SRT [Concomitant]
     Indication: MYOCARDIAL ISCHAEMIA
     Route: 048
     Dates: start: 20050823, end: 20061001
  3. CLOPIDOGREL [Concomitant]
     Indication: MYOCARDIAL ISCHAEMIA
     Route: 048
     Dates: start: 20050712, end: 20060524
  4. IRBESARTAN [Concomitant]
     Indication: MYOCARDIAL ISCHAEMIA
     Route: 048
     Dates: start: 20060718, end: 20060801
  5. METOPROLOL SUCCINATE [Concomitant]
     Indication: MYOCARDIAL ISCHAEMIA
     Route: 048
  6. RAMIPRIL [Concomitant]
     Indication: MYOCARDIAL ISCHAEMIA
     Route: 048
     Dates: start: 20050712, end: 20060501

REACTIONS (3)
  - ABDOMINAL HERNIA [None]
  - COUGH [None]
  - INGUINAL HERNIA [None]
